FAERS Safety Report 10562351 (Version 1)
Quarter: 2014Q4

REPORT INFORMATION
  Report Type: Spontaneous
  Country: BR (occurrence: None)
  Receive Date: 20141031
  Receipt Date: 20141031
  Transmission Date: 20150529
  Serious: Yes (Death)
  Sender: FDA-Public Use
  Company Number: 2014COR00104

PATIENT
  Age: 79 Year
  Sex: Male

DRUGS (5)
  1. FUROSEMIDE (FUROSEMIDE) UNKNOWN [Suspect]
     Active Substance: FUROSEMIDE
  2. ISOSORBIDE (ISOSORBIDE) UNKNOWN [Suspect]
     Active Substance: ISOSORBIDE
  3. CAPTOPRIL (CAPTOPRIL) UNKNOWN [Suspect]
     Active Substance: CAPTOPRIL
  4. SPIRONOLACTONE (SPIRONOLACTONE) UNKNOWN [Suspect]
     Active Substance: SPIRONOLACTONE
  5. SIMVASTATIN. [Concomitant]
     Active Substance: SIMVASTATIN

REACTIONS (2)
  - Hypotension [None]
  - Renal failure [None]
